FAERS Safety Report 9515427 (Version 1)
Quarter: 2013Q1

REPORT INFORMATION
  Report Type: Spontaneous
  Country: US (occurrence: None)
  Receive Date: 20130305
  Receipt Date: 20130305
  Transmission Date: 20140127
  Serious: Yes (Other)
  Sender: FDA-Public Use
  Company Number: 163-21880-12102842

PATIENT
  Age: 89 Year
  Sex: Male
  Weight: 63.05 kg

DRUGS (4)
  1. REVLIMID [Suspect]
     Indication: PLASMA CELL MYELOMA
     Dosage: 25 MG, 14 IN 14 D, PO
     Route: 048
     Dates: start: 20120724
  2. LOVENOX (HEPARIN -FRACTION, SODIUM SALT) [Concomitant]
  3. COUMADIN (WARFARIN SODIUM) [Concomitant]
  4. VELCADE [Concomitant]

REACTIONS (1)
  - Deep vein thrombosis [None]
